FAERS Safety Report 24836671 (Version 1)
Quarter: 2025Q1

REPORT INFORMATION
  Report Type: Spontaneous
  Country: US (occurrence: US)
  Receive Date: 20250113
  Receipt Date: 20250113
  Transmission Date: 20250409
  Serious: Yes (Death, Hospitalization, Other)
  Sender: APOTEX
  Company Number: US-APOTEX-2025AP000191

PATIENT
  Age: 23 Year
  Sex: Female

DRUGS (4)
  1. ACETAMINOPHEN [Suspect]
     Active Substance: ACETAMINOPHEN
     Indication: Product used for unknown indication
     Route: 048
  2. ISOPROPANOLAMINE [Suspect]
     Active Substance: ISOPROPANOLAMINE
     Indication: Product used for unknown indication
     Route: 048
  3. IBUPROFEN [Suspect]
     Active Substance: IBUPROFEN
     Indication: Product used for unknown indication
     Route: 048
  4. BLACK PEPPER [Suspect]
     Active Substance: BLACK PEPPER
     Indication: Product used for unknown indication
     Route: 048

REACTIONS (13)
  - Completed suicide [Fatal]
  - Septic shock [Fatal]
  - Cytokine storm [Fatal]
  - Shock [Fatal]
  - Seizure [Fatal]
  - Maternal exposure during pregnancy [Fatal]
  - Acidosis [Fatal]
  - Liver function test increased [Fatal]
  - Cardiac output decreased [Fatal]
  - Vomiting [Fatal]
  - Mental disorder [Fatal]
  - Hypotension [Fatal]
  - Intentional product use issue [Fatal]

NARRATIVE: CASE EVENT DATE: 20230101
